FAERS Safety Report 7990673-9 (Version None)
Quarter: 2011Q4

REPORT INFORMATION
  Report Type: 
  Country: None (occurrence: None)
  Receive Date: 20111219
  Receipt Date: 20111209
  Transmission Date: 20120403
  Serious: Yes (Hospitalization)
  Sender: FDA-Public Use
  Company Number: US-BAYER-2011-042248

PATIENT
  Age: 39 Year
  Sex: Female
  Weight: 133.79 kg

DRUGS (11)
  1. LIPITOR [Concomitant]
     Dosage: UNK
     Dates: start: 20020320
  2. BACTRIM [Concomitant]
     Dosage: UNK
     Dates: start: 20020320
  3. YASMIN [Suspect]
     Dosage: UNK
     Dates: start: 20011227, end: 20020321
  4. ACTOS [Concomitant]
     Dosage: UNK
     Dates: start: 20020320
  5. EFFIENT [Concomitant]
     Dosage: 10 MG, QD
     Dates: start: 20101229
  6. PLAVIX [Concomitant]
     Dosage: 75 MG, QD
     Dates: start: 20101206
  7. ALTACE [Concomitant]
     Dosage: UNK
     Dates: start: 20020320
  8. WELCHOL [Concomitant]
     Dosage: UNK
     Dates: start: 20020320
  9. TOPROL-XL [Concomitant]
     Dosage: UNK
     Dates: start: 20020320
  10. ASPIRIN [Concomitant]
     Dosage: 325 MG, QD
     Dates: start: 20101228
  11. GLUCOVANCE [Concomitant]
     Dosage: UNK
     Dates: start: 20020320

REACTIONS (11)
  - OEDEMA PERIPHERAL [None]
  - CHEST PAIN [None]
  - PULMONARY EMBOLISM [None]
  - DEEP VEIN THROMBOSIS [None]
  - EMOTIONAL DISTRESS [None]
  - PAIN [None]
  - DYSPNOEA [None]
  - NAUSEA [None]
  - ANXIETY [None]
  - GENERAL PHYSICAL HEALTH DETERIORATION [None]
  - MUSCLE SPASMS [None]
